FAERS Safety Report 7454362-1 (Version None)
Quarter: 2011Q2

REPORT INFORMATION
  Report Type: 
  Country: None (occurrence: None)
  Receive Date: 20110503
  Receipt Date: 20110428
  Transmission Date: 20111010
  Serious: No
  Sender: FDA-Public Use
  Company Number: US-JNJFOC-20110500433

PATIENT
  Age: 40 Year
  Sex: Female
  Weight: 70.31 kg

DRUGS (4)
  1. RISPERDAL [Suspect]
     Indication: SCHIZOPHRENIA
     Route: 048
  2. INVEGA [Suspect]
     Indication: SCHIZOPHRENIA
     Route: 048
  3. INVEGA SUSTENNA [Suspect]
     Indication: SCHIZOPHRENIA
     Route: 030
  4. INVEGA SUSTENNA [Suspect]
     Route: 030

REACTIONS (7)
  - DYSMENORRHOEA [None]
  - VOMITING [None]
  - DIARRHOEA [None]
  - MENORRHAGIA [None]
  - CONFUSIONAL STATE [None]
  - NAUSEA [None]
  - FEELING ABNORMAL [None]
